FAERS Safety Report 25095980 (Version 1)
Quarter: 2025Q1

REPORT INFORMATION
  Report Type: Spontaneous
  Country: US (occurrence: US)
  Receive Date: 20250319
  Receipt Date: 20250319
  Transmission Date: 20250409
  Serious: No
  Sender: TEIKOKU
  Company Number: US-TPU-TPU-2025-00101

PATIENT
  Sex: Female

DRUGS (2)
  1. LIDODERM [Suspect]
     Active Substance: LIDOCAINE
     Indication: Osteoarthritis
  2. LIDODERM [Suspect]
     Active Substance: LIDOCAINE
     Indication: Herpes zoster

REACTIONS (1)
  - Prescription drug used without a prescription [Unknown]
